FAERS Safety Report 4922304-6 (Version None)
Quarter: 2006Q1

REPORT INFORMATION
  Report Type: 
  Country: None (occurrence: None)
  Receive Date: 20060224
  Receipt Date: 20060217
  Transmission Date: 20060701
  Serious: Yes (Hospitalization)
  Sender: FDA-Public Use
  Company Number: CA-MERCK-0602CAN00108

PATIENT
  Age: 80 Year
  Sex: Female

DRUGS (1)
  1. TIMOPTIC-XE [Suspect]
     Route: 047

REACTIONS (1)
  - RESPIRATION ABNORMAL [None]
